FAERS Safety Report 19811451 (Version 1)
Quarter: 2021Q3

REPORT INFORMATION
  Report Type: Spontaneous
  Country: CA (occurrence: CA)
  Receive Date: 20210909
  Receipt Date: 20210909
  Transmission Date: 20211014
  Serious: Yes (Other)
  Sender: FDA-Public Use
  Company Number: CA-PFIZER INC-202101110254

PATIENT
  Age: 72 Year
  Sex: Male

DRUGS (1)
  1. SUTENT [Suspect]
     Active Substance: SUNITINIB MALATE
     Indication: CHONDROSARCOMA METASTATIC
     Dosage: UNK
     Dates: start: 2012

REACTIONS (5)
  - Mobility decreased [Unknown]
  - Off label use [Unknown]
  - Angiopathy [Unknown]
  - Pain in extremity [Not Recovered/Not Resolved]
  - Neoplasm progression [Unknown]

NARRATIVE: CASE EVENT DATE: 2012
